FAERS Safety Report 15585235 (Version 1)
Quarter: 2018Q4

REPORT INFORMATION
  Report Type: Spontaneous
  Country: US (occurrence: US)
  Receive Date: 20181105
  Receipt Date: 20181105
  Transmission Date: 20190205
  Serious: Yes (Life-Threatening)
  Sender: FDA-Public Use
  Company Number: US-ROCHE-2208864

PATIENT
  Sex: Male
  Weight: 58.57 kg

DRUGS (1)
  1. ALECENSA [Suspect]
     Active Substance: ALECTINIB HYDROCHLORIDE
     Indication: NEOPLASM MALIGNANT
     Dosage: 4 CAP BY MOUTH TWICE; ONGOING: UNKNOWN
     Route: 048

REACTIONS (4)
  - Chest pain [Unknown]
  - Gastric dilatation [Unknown]
  - Memory impairment [Unknown]
  - Angina pectoris [Unknown]
